FAERS Safety Report 7654272-0 (Version None)
Quarter: 2011Q3

REPORT INFORMATION
  Report Type: 
  Country: None (occurrence: None)
  Receive Date: 20110728
  Receipt Date: 20110715
  Transmission Date: 20111222
  Serious: Yes (Other)
  Sender: FDA-Public Use
  Company Number: 2011ST000172

PATIENT
  Age: 15 Year
  Sex: Male

DRUGS (8)
  1. VELCADE [Suspect]
     Indication: T-CELL TYPE ACUTE LEUKAEMIA
     Dosage: 1.3 MG/M**2;IV
     Route: 042
     Dates: start: 20110531, end: 20110610
  2. PREDNISONE [Suspect]
     Indication: T-CELL TYPE ACUTE LEUKAEMIA
     Dosage: 20 MG/M**2;QD;PO
     Route: 048
     Dates: start: 20110531, end: 20110628
  3. HYDROCORTISONE [Concomitant]
  4. METHOTREXATE [Suspect]
     Indication: T-CELL TYPE ACUTE LEUKAEMIA
     Dosage: INTH
     Route: 037
     Dates: start: 20110531, end: 20110628
  5. ONCASPAR [Suspect]
     Indication: T-CELL TYPE ACUTE LEUKAEMIA
     Dosage: 2500 IU/M*2;IM
     Route: 030
     Dates: start: 20110531, end: 20110621
  6. VINCRISTINE [Suspect]
     Indication: T-CELL TYPE ACUTE LEUKAEMIA
     Dosage: 1.5 MG;M**2;QD;IV
     Route: 042
     Dates: start: 20110531, end: 20110621
  7. DOXORUBICIN HCL [Suspect]
     Indication: T-CELL TYPE ACUTE LEUKAEMIA
     Dosage: 60 MG/M**2;X1;IV
     Route: 042
     Dates: start: 20110531, end: 20110531
  8. CYTARABINE [Suspect]
     Indication: T-CELL TYPE ACUTE LEUKAEMIA
     Dosage: 70 MG;X1;INTH
     Route: 037
     Dates: start: 20110531, end: 20110531

REACTIONS (5)
  - HYPOALBUMINAEMIA [None]
  - HYPOCALCAEMIA [None]
  - BLOOD CHOLESTEROL INCREASED [None]
  - BLOOD BILIRUBIN INCREASED [None]
  - HYPERTRIGLYCERIDAEMIA [None]
